FAERS Safety Report 6217789-1 (Version None)
Quarter: 2009Q2

REPORT INFORMATION
  Report Type: 
  Country: None (occurrence: None)
  Receive Date: 20090608
  Receipt Date: 20090604
  Transmission Date: 20091009
  Serious: Yes (Death, Congenital Anomaly)
  Sender: FDA-Public Use
  Company Number: NL-JNJFOC-20090601791

PATIENT

DRUGS (5)
  1. CONCERTA [Suspect]
     Indication: DRUG EXPOSURE DURING PREGNANCY
  2. CITALOPRAM HYDROBROMIDE [Concomitant]
  3. LAMOTRIGINE [Concomitant]
     Route: 015
  4. ANTIDEPRESSANT [Concomitant]
  5. UNSPECIFIED ORAL CONTRACEPTIVE [Concomitant]
     Route: 015

REACTIONS (2)
  - CONGENITAL ANOMALY [None]
  - DEATH [None]
